FAERS Safety Report 4764271-4 (Version None)
Quarter: 2005Q3

REPORT INFORMATION
  Report Type: 
  Country: None (occurrence: None)
  Receive Date: 20050907
  Receipt Date: 20050907
  Transmission Date: 20060218
  Serious: No
  Sender: FDA-Public Use
  Company Number: None

PATIENT
  Sex: Female

DRUGS (1)
  1. BUPROPRION 150 MG TABS [Suspect]
     Indication: DEPRESSION
     Dosage: BID PO
     Route: 048

REACTIONS (2)
  - DRUG INTOLERANCE [None]
  - HEADACHE [None]
